FAERS Safety Report 13258385 (Version 2)
Quarter: 2017Q3

REPORT INFORMATION
  Report Type: Report from Study
  Country: US (occurrence: US)
  Receive Date: 20170222
  Receipt Date: 20170911
  Transmission Date: 20171127
  Serious: No
  Sender: FDA-Public Use
  Company Number: PHEH2017US004946

PATIENT
  Sex: Female

DRUGS (2)
  1. ILARIS [Suspect]
     Active Substance: CANAKINUMAB
     Dosage: UNK EVERY 4 WEEKS
     Route: 065
     Dates: start: 20170111
  2. ILARIS [Suspect]
     Active Substance: CANAKINUMAB
     Indication: STILL^S DISEASE
     Dosage: 120 MG, EVERY 4 WEEKS
     Route: 058

REACTIONS (1)
  - Inappropriate schedule of drug administration [Unknown]
